FAERS Safety Report 7153125-4 (Version None)
Quarter: 2010Q4

REPORT INFORMATION
  Report Type: 
  Country: None (occurrence: None)
  Receive Date: 20101213
  Receipt Date: 20101201
  Transmission Date: 20110411
  Serious: Yes (Other)
  Sender: FDA-Public Use
  Company Number: PHHY2009JP21912

PATIENT
  Sex: Male
  Weight: 58 kg

DRUGS (8)
  1. NEORAL [Suspect]
     Indication: RENAL TRANSPLANT
     Dosage: 500 MG DAILY
     Route: 048
     Dates: start: 20080801
  2. SIMULECT [Suspect]
     Indication: RENAL TRANSPLANT
     Dosage: 20 MG DAILY
     Route: 042
     Dates: start: 20080806, end: 20080806
  3. SIMULECT [Suspect]
     Dosage: 20 MG DAILY
     Route: 042
     Dates: start: 20080810, end: 20080810
  4. MYCOPHENOLATE MOFETIL [Suspect]
     Indication: RENAL TRANSPLANT
     Dosage: 1000 MG DAILY
     Route: 048
     Dates: start: 20080801
  5. PREDNISOLONE [Concomitant]
     Indication: RENAL TRANSPLANT
     Dosage: 40 MG, UNK
     Route: 048
     Dates: start: 20080806
  6. PREDNISOLONE [Concomitant]
     Dosage: UNK
     Route: 042
  7. HERBESSER [Concomitant]
     Indication: HYPERTENSION
     Dosage: 1 DF, UNK
     Route: 048
     Dates: start: 20080101
  8. ULCERLMIN [Concomitant]
     Dosage: 3 G, UNK
     Route: 048
     Dates: start: 20080801

REACTIONS (7)
  - ABDOMINAL CAVITY DRAINAGE [None]
  - ASCITES [None]
  - BLOOD CREATININE INCREASED [None]
  - BLOOD PRESSURE INCREASED [None]
  - BLOOD UREA INCREASED [None]
  - IMMUNOSUPPRESSANT DRUG LEVEL INCREASED [None]
  - WEIGHT INCREASED [None]
